FAERS Safety Report 10412963 (Version 1)
Quarter: 2014Q3

REPORT INFORMATION
  Report Type: Spontaneous
  Country: US (occurrence: None)
  Receive Date: 20140826
  Receipt Date: 20140826
  Transmission Date: 20150326
  Serious: Yes (Hospitalization)
  Sender: FDA-Public Use
  Company Number: None

PATIENT
  Age: 37 Year
  Sex: Female
  Weight: 58.97 kg

DRUGS (3)
  1. SULFAMETHOXAZOLE-TMP DS [Suspect]
     Active Substance: SULFAMETHOXAZOLE\TRIMETHOPRIM
     Indication: STAPHYLOCOCCAL INFECTION
     Dosage: 1 PILL TWICE DAILY TAKEN BY MOUTH
     Route: 048
     Dates: start: 20140818, end: 20140824
  2. SULFAMETHOXAZOLE-TMP DS [Suspect]
     Active Substance: SULFAMETHOXAZOLE\TRIMETHOPRIM
     Indication: PHARYNGITIS
     Dosage: 1 PILL TWICE DAILY TAKEN BY MOUTH
     Route: 048
     Dates: start: 20140818, end: 20140824
  3. SULFAMETHOXAZOLE-TMP DS [Suspect]
     Active Substance: SULFAMETHOXAZOLE\TRIMETHOPRIM
     Indication: ENTEROBACTER INFECTION
     Dosage: 1 PILL TWICE DAILY TAKEN BY MOUTH
     Route: 048
     Dates: start: 20140818, end: 20140824

REACTIONS (12)
  - Fatigue [None]
  - Chest pain [None]
  - Pharyngeal oedema [None]
  - Hypoaesthesia [None]
  - Palpitations [None]
  - Asthenia [None]
  - Hypotension [None]
  - Depression [None]
  - Vision blurred [None]
  - Nervousness [None]
  - Dizziness [None]
  - Heart rate increased [None]

NARRATIVE: CASE EVENT DATE: 20140824
